FAERS Safety Report 23004691 (Version 2)
Quarter: 2023Q4

REPORT INFORMATION
  Report Type: Spontaneous
  Country: US (occurrence: US)
  Receive Date: 20230929
  Receipt Date: 20231219
  Transmission Date: 20240110
  Serious: No
  Sender: FDA-Public Use
  Company Number: US-BRISTOL-MYERS SQUIBB COMPANY-2023-136970

PATIENT
  Age: 68 Year
  Sex: Male

DRUGS (1)
  1. REVLIMID [Suspect]
     Active Substance: LENALIDOMIDE
     Indication: Plasma cell myeloma
     Dosage: FREQ : DAILY FOR 3 WEEKS ON AND 1 WEEK OFF
     Dates: start: 20230330

REACTIONS (1)
  - Irritable bowel syndrome [Unknown]

NARRATIVE: CASE EVENT DATE: 20230101
